FAERS Safety Report 5118734-2 (Version None)
Quarter: 2006Q4

REPORT INFORMATION
  Report Type: 
  Country: None (occurrence: None)
  Receive Date: 20061002
  Receipt Date: 20060904
  Transmission Date: 20070319
  Serious: Yes (Death, Hospitalization)
  Sender: FDA-Public Use
  Company Number: CN-ROCHE-461849

PATIENT
  Age: 51 Year
  Sex: Male
  Weight: 46 kg

DRUGS (3)
  1. CAPECITABINE [Suspect]
     Indication: GASTRIC CANCER
     Dosage: ADMINISTERED ON DAYS 1-14 OF A 3 WEEK CYCLE
     Route: 048
     Dates: start: 20060817, end: 20060830
  2. HERCEPTIN [Suspect]
     Indication: GASTRIC CANCER
     Dosage: LOADING DOSE
     Route: 042
     Dates: start: 20060817, end: 20060817
  3. CISPLATIN [Suspect]
     Indication: GASTRIC CANCER
     Dosage: ADMINISTERED ON D1
     Route: 042
     Dates: start: 20060817

REACTIONS (7)
  - GASTRIC CANCER [None]
  - LEUKOPENIA [None]
  - MALIGNANT NEOPLASM PROGRESSION [None]
  - NEUTROPENIA [None]
  - PYREXIA [None]
  - RESPIRATORY FAILURE [None]
  - THROMBOCYTOPENIA [None]
